FAERS Safety Report 18019327 (Version 1)
Quarter: 2020Q3

REPORT INFORMATION
  Report Type: Spontaneous
  Country: JP (occurrence: JP)
  Receive Date: 20200714
  Receipt Date: 20200714
  Transmission Date: 20201103
  Serious: Yes (Death)
  Sender: FDA-Public Use
  Company Number: NVSJ2020JP006714

PATIENT
  Age: 42 Year
  Sex: Female

DRUGS (2)
  1. IMATINIB MESILATE [Suspect]
     Active Substance: IMATINIB MESYLATE
     Indication: PULMONARY TUMOUR THROMBOTIC MICROANGIOPATHY
     Dosage: 200 MG, QD
     Route: 065
  2. IMATINIB MESILATE [Suspect]
     Active Substance: IMATINIB MESYLATE
     Indication: BREAST CANCER
     Dosage: 100 MG
     Route: 065

REACTIONS (3)
  - Malignant neoplasm progression [Fatal]
  - Breast cancer [Fatal]
  - Product use in unapproved indication [Unknown]
